FAERS Safety Report 19695564 (Version 2)
Quarter: 2022Q2

REPORT INFORMATION
  Report Type: Report from Study
  Country: FR (occurrence: FR)
  Receive Date: 20210813
  Receipt Date: 20220531
  Transmission Date: 20220721
  Serious: Yes (Life-Threatening, Hospitalization, Other)
  Sender: FDA-Public Use
  Company Number: FR-TEVA-2021-FR-1938058

PATIENT
  Age: 66 Year
  Sex: Male

DRUGS (2)
  1. FLECAINIDE [Interacting]
     Active Substance: FLECAINIDE
     Indication: Atrial fibrillation
     Dosage: 300 MILLIGRAM
     Route: 048
  2. VERNAKALANT [Interacting]
     Active Substance: VERNAKALANT
     Indication: Atrial fibrillation
     Dosage: UNK
     Route: 041

REACTIONS (3)
  - Sinus arrest [Recovered/Resolved]
  - Treatment failure [Unknown]
  - Drug interaction [Unknown]
